FAERS Safety Report 8969347 (Version 1)
Quarter: 2012Q4

REPORT INFORMATION
  Report Type: 
  Country: US (occurrence: US)
  Receive Date: 20121217
  Receipt Date: 20121217
  Transmission Date: 20130627
  Serious: Yes (Hospitalization, Other)
  Sender: FDA-Public Use
  Company Number: US-ASTRAZENECA-2012SE92348

PATIENT
  Age: 40 Year
  Sex: Male
  Weight: 137.9 kg

DRUGS (11)
  1. PRILOSEC OTC [Suspect]
     Route: 048
  2. ZESTRIL [Suspect]
     Route: 048
     Dates: start: 20120125
  3. METOPROLOL SUCCINATE [Suspect]
     Route: 048
     Dates: start: 20110903
  4. NORVASC [Concomitant]
     Route: 048
     Dates: start: 20120125
  5. LASIX [Concomitant]
     Route: 048
     Dates: start: 20120125
  6. NUCYNTA [Concomitant]
     Route: 048
  7. NORCO [Concomitant]
     Indication: PAIN
     Dosage: 10/135MG, 1 TAB, EVRY 8HRS AS NEEDED
     Route: 048
     Dates: start: 20111018
  8. ASPIRIN EC [Concomitant]
     Route: 048
  9. NITROGLYCERIN [Concomitant]
     Indication: CHEST PAIN
     Dosage: 0.4MG, 1 TAB, EVERY 5 MIN, AS NEEDED
     Route: 060
     Dates: start: 20110906
  10. PRASUGREL HCL [Concomitant]
     Route: 048
     Dates: start: 20110903
  11. ATORVASTATIN [Concomitant]
     Route: 048
     Dates: start: 20110903, end: 20120404

REACTIONS (23)
  - Coronary artery disease [Unknown]
  - Chest pain [Recovering/Resolving]
  - Neuropathy peripheral [Unknown]
  - Acute myocardial infarction [Unknown]
  - Neoplasm malignant [Unknown]
  - Road traffic accident [Unknown]
  - Limb injury [Unknown]
  - Patella fracture [Unknown]
  - Dyspnoea [Unknown]
  - Essential hypertension [Unknown]
  - Blood pressure abnormal [Unknown]
  - Obesity [Unknown]
  - Weight increased [Unknown]
  - Hyperlipidaemia [Unknown]
  - Dyslipidaemia [Unknown]
  - Gastrooesophageal reflux disease [Unknown]
  - Arthropathy [Unknown]
  - Pain in extremity [Unknown]
  - Hypothyroidism [Unknown]
  - Bronchitis chronic [Unknown]
  - Diabetes mellitus [Unknown]
  - Asthma [Unknown]
  - Cardiac failure congestive [Unknown]
